FAERS Safety Report 8462529-9 (Version None)
Quarter: 2012Q2

REPORT INFORMATION
  Report Type: 
  Country: None (occurrence: None)
  Receive Date: 20120625
  Receipt Date: 20120618
  Transmission Date: 20120825
  Serious: Yes (Hospitalization)
  Sender: FDA-Public Use
  Company Number: US-BAYER-2012-060917

PATIENT
  Age: 43 Year
  Sex: Female
  Weight: 127.89 kg

DRUGS (9)
  1. DROSPIRENONE AND ETHINYL ESTRADIOL [Suspect]
  2. VENTOLIN [Concomitant]
     Indication: DYSPNOEA
  3. YASMIN [Suspect]
  4. ERGOCALCIFEROL [Concomitant]
  5. SERTRALINE HYDROCHLORIDE [Concomitant]
     Indication: AFFECTIVE DISORDER
     Dosage: 25 MG, EVERYDAY
  6. ZYRTEC CHILDREN+#8217;S ALLERGY [Concomitant]
     Dosage: 5 MG, PRN
     Route: 048
  7. IBUPROFEN (ADVIL) [Concomitant]
  8. VENTOLIN [Concomitant]
     Indication: WHEEZING
     Dosage: 2 PUFF(S), EVERY 4 TO 6 HOURS AS NEEDED
     Route: 045
  9. ACETAMINOPHEN [Concomitant]

REACTIONS (1)
  - DEEP VEIN THROMBOSIS [None]
